FAERS Safety Report 10777682 (Version 1)
Quarter: 2015Q1

REPORT INFORMATION
  Report Type: Spontaneous
  Country: IT (occurrence: IT)
  Receive Date: 20150209
  Receipt Date: 20150209
  Transmission Date: 20150721
  Serious: Yes (Life-Threatening, Other)
  Sender: FDA-Public Use
  Company Number: IT-SA-2015SA011998

PATIENT
  Age: 68 Year
  Sex: Male

DRUGS (1)
  1. FERLIXIT [Suspect]
     Active Substance: SODIUM FERRIC GLUCONATE COMPLEX
     Indication: ANAEMIA
     Dosage: FORM: SOLUTION FOR ORAL AND IV.
     Route: 042
     Dates: start: 20150116, end: 20150116

REACTIONS (2)
  - Skin haemorrhage [Unknown]
  - Shock [Unknown]

NARRATIVE: CASE EVENT DATE: 20150116
